FAERS Safety Report 16972192 (Version 4)
Quarter: 2020Q1

REPORT INFORMATION
  Report Type: Spontaneous
  Country: US (occurrence: US)
  Receive Date: 20191029
  Receipt Date: 20200127
  Transmission Date: 20200409
  Serious: Yes (Death, Hospitalization)
  Sender: FDA-Public Use
  Company Number: US-ACTELION-A-NJ2019-197525

PATIENT
  Sex: Male
  Weight: 136.05 kg

DRUGS (3)
  1. UPTRAVI [Suspect]
     Active Substance: SELEXIPAG
     Indication: PULMONARY ARTERIAL HYPERTENSION
     Dosage: 1400 MCG, BID
     Route: 048
  2. OPSUMIT [Suspect]
     Active Substance: MACITENTAN
     Indication: PULMONARY ARTERIAL HYPERTENSION
     Dosage: 10 MG, QD
     Route: 048
     Dates: start: 20180207
  3. ADCIRCA [Concomitant]
     Active Substance: TADALAFIL

REACTIONS (5)
  - Fibrosis [Fatal]
  - Oxygen saturation decreased [Unknown]
  - Renal failure [Unknown]
  - Pulmonary arterial hypertension [Fatal]
  - Chest discomfort [Fatal]
